FAERS Safety Report 5118130-8 (Version None)
Quarter: 2006Q4

REPORT INFORMATION
  Report Type: 
  Country: None (occurrence: None)
  Receive Date: 20061002
  Receipt Date: 20060919
  Transmission Date: 20070319
  Serious: Yes (Other)
  Sender: FDA-Public Use
  Company Number: PHNU2006DE03159

PATIENT
  Age: 61 Year
  Sex: Female

DRUGS (1)
  1. ZOMETA [Suspect]
     Indication: MULTIPLE MYELOMA
     Dates: start: 20020101, end: 20050101

REACTIONS (12)
  - BONE DISORDER [None]
  - COMPUTERISED TOMOGRAM ABNORMAL [None]
  - FISTULA [None]
  - HISTOLOGY ABNORMAL [None]
  - MOUTH ULCERATION [None]
  - ORAL MUCOSA ATROPHY [None]
  - OSTEOLYSIS [None]
  - OSTEONECROSIS [None]
  - OSTEOSCLEROSIS [None]
  - STEM CELL TRANSPLANT [None]
  - TOOTH EXTRACTION [None]
  - X-RAY ABNORMAL [None]
